FAERS Safety Report 4978233-5 (Version None)
Quarter: 2006Q2

REPORT INFORMATION
  Report Type: 
  Country: None (occurrence: None)
  Receive Date: 20060417
  Receipt Date: 20060404
  Transmission Date: 20061013
  Serious: Yes (Hospitalization)
  Sender: FDA-Public Use
  Company Number: MEDI-0004350

PATIENT
  Age: 55 Year
  Sex: Female
  Weight: 65.5448 kg

DRUGS (8)
  1. ETHYOL [Suspect]
     Indication: RADIOTHERAPY
     Dosage: 500 MG, SUBCUTANEOUS
     Route: 058
     Dates: start: 20060223, end: 20060322
  2. CISPLATIN [Concomitant]
  3. RADIATION THERAPY [Concomitant]
  4. LEVOTHYROXINE SODIUM [Concomitant]
  5. ZOCOR [Concomitant]
  6. PREVACID [Concomitant]
  7. ROXICET [Concomitant]
  8. PREVADENT [Concomitant]

REACTIONS (7)
  - ALANINE AMINOTRANSFERASE INCREASED [None]
  - ASPARTATE AMINOTRANSFERASE INCREASED [None]
  - INJECTION SITE ERYTHEMA [None]
  - NAUSEA [None]
  - NEUTROPENIA [None]
  - PYREXIA [None]
  - VOMITING [None]
